FAERS Safety Report 12575093 (Version 1)
Quarter: 2016Q3

REPORT INFORMATION
  Report Type: Spontaneous
  Country: US (occurrence: US)
  Receive Date: 20160720
  Receipt Date: 20160720
  Transmission Date: 20161109
  Serious: No
  Sender: FDA-Public Use
  Company Number: US-ASTELLAS-2015US046360

PATIENT
  Sex: Male

DRUGS (2)
  1. VESICARE [Suspect]
     Active Substance: SOLIFENACIN SUCCINATE
     Indication: POLLAKIURIA
     Dosage: 5 MG, ONCE DAILY (IN MORNING)
     Route: 065
  2. VESICARE [Suspect]
     Active Substance: SOLIFENACIN SUCCINATE
     Indication: BENIGN PROSTATIC HYPERPLASIA

REACTIONS (2)
  - Nocturia [Recovering/Resolving]
  - Drug ineffective for unapproved indication [Not Recovered/Not Resolved]
